FAERS Safety Report 6938096-5 (Version None)
Quarter: 2010Q3

REPORT INFORMATION
  Report Type: 
  Country: None (occurrence: None)
  Receive Date: 20100824
  Receipt Date: 20100812
  Transmission Date: 20110219
  Serious: No
  Sender: FDA-Public Use
  Company Number: US-ELI_LILLY_AND_COMPANY-US201005006007

PATIENT
  Sex: Male

DRUGS (9)
  1. CIALIS [Suspect]
     Indication: ERECTILE DYSFUNCTION
     Dosage: 20 MG, OTHER
     Dates: end: 20100501
  2. CIALIS [Suspect]
     Dosage: 20 MG, DAILY (1/D)
     Dates: start: 20100501, end: 20100518
  3. CIALIS [Suspect]
     Dosage: 4 MG, UNK
  4. LISINOPRIL [Concomitant]
  5. AMLODIPINE [Concomitant]
  6. CHONDROITIN W/GLUCOSAMINE [Concomitant]
  7. PROAIR HFA [Concomitant]
     Dosage: UNK, AS NEEDED
  8. TRIMOX [Concomitant]
  9. PGE 1 [Concomitant]

REACTIONS (10)
  - CATARACT [None]
  - CYANOPSIA [None]
  - DRUG INEFFECTIVE [None]
  - EYE IRRITATION [None]
  - HANGOVER [None]
  - HEADACHE [None]
  - INTENTIONAL DRUG MISUSE [None]
  - OCULAR HYPERAEMIA [None]
  - TESTICULAR PAIN [None]
  - TESTICULAR SWELLING [None]
